FAERS Safety Report 23669686 (Version 1)
Quarter: 2024Q1

REPORT INFORMATION
  Report Type: Spontaneous
  Country: CN (occurrence: CN)
  Receive Date: 20240325
  Receipt Date: 20240325
  Transmission Date: 20240410
  Serious: Yes (Hospitalization, Other)
  Sender: FDA-Public Use
  Company Number: CN-PFIZER INC-PV202400039497

PATIENT
  Age: 71 Year
  Sex: Female
  Weight: 50 kg

DRUGS (6)
  1. CYTARABINE [Suspect]
     Active Substance: CYTARABINE
     Indication: Chemotherapy
     Dosage: 15 MG, 2X/DAY
     Route: 041
     Dates: start: 20240226, end: 20240301
  2. CYTARABINE [Suspect]
     Active Substance: CYTARABINE
     Dosage: 15 MG, 2X/DAY
     Route: 058
     Dates: start: 20240302, end: 20240311
  3. ACLARUBICIN [Suspect]
     Active Substance: ACLARUBICIN
     Indication: Chemotherapy
     Dosage: 20 MG, 1X/DAY
     Route: 041
     Dates: start: 20240226, end: 20240301
  4. SODIUM CHLORIDE [Concomitant]
     Indication: Vehicle solution use
     Dosage: 100 ML, 2X/DAY
     Route: 041
     Dates: start: 20240226, end: 20240301
  5. SODIUM CHLORIDE [Concomitant]
     Dosage: 100 ML, 1X/DAY
     Route: 041
     Dates: start: 20240226, end: 20240301
  6. SODIUM CHLORIDE [Concomitant]
     Dosage: 2 ML, 2X/DAY
     Route: 058
     Dates: start: 20240302, end: 20240311

REACTIONS (3)
  - Myelosuppression [Not Recovered/Not Resolved]
  - Gastrointestinal haemorrhage [Not Recovered/Not Resolved]
  - Chills [Not Recovered/Not Resolved]

NARRATIVE: CASE EVENT DATE: 20240316
